FAERS Safety Report 9021472 (Version 1)
Quarter: 2013Q1

REPORT INFORMATION
  Report Type: Spontaneous
  Country: US (occurrence: US)
  Receive Date: 20130119
  Receipt Date: 20130119
  Transmission Date: 20140127
  Serious: No
  Sender: FDA-Public Use
  Company Number: US-ALLERGAN-1201816US

PATIENT
  Age: 56 Year
  Sex: Female

DRUGS (2)
  1. BOTOX? [Suspect]
     Indication: BLEPHAROSPASM
     Dosage: UNK
     Route: 030
     Dates: start: 201111, end: 201111
  2. BOTOX? [Suspect]
     Dosage: UNK
     Route: 030
     Dates: start: 2011, end: 2011

REACTIONS (2)
  - Influenza like illness [Recovered/Resolved]
  - Muscular weakness [Recovered/Resolved]
